FAERS Safety Report 20710860 (Version 5)
Quarter: 2025Q1

REPORT INFORMATION
  Report Type: Spontaneous
  Country: US (occurrence: US)
  Receive Date: 20220414
  Receipt Date: 20250116
  Transmission Date: 20250408
  Serious: No
  Sender: SUNOVION
  Company Number: US-MYOVANT SCIENCES GMBH-2022MYSCI0100026

PATIENT

DRUGS (10)
  1. ORGOVYX [Suspect]
     Active Substance: RELUGOLIX
     Indication: Prostate cancer
     Dosage: 360 MILLIGRAM, ONE TIME DOSE
     Route: 048
  2. ORGOVYX [Suspect]
     Active Substance: RELUGOLIX
     Dosage: 120 MILLIGRAM, QD
     Route: 048
  3. ORGOVYX [Suspect]
     Active Substance: RELUGOLIX
     Dosage: 240 MILLIGRAM, QD
     Route: 048
  4. ORGOVYX [Suspect]
     Active Substance: RELUGOLIX
     Dosage: 120 MILLIGRAM, QD
     Route: 048
  5. ORGOVYX [Suspect]
     Active Substance: RELUGOLIX
     Route: 065
  6. ORGOVYX [Suspect]
     Active Substance: RELUGOLIX
  7. ORGOVYX [Suspect]
     Active Substance: RELUGOLIX
  8. ORGOVYX [Suspect]
     Active Substance: RELUGOLIX
  9. ORGOVYX [Suspect]
     Active Substance: RELUGOLIX
     Dosage: 120 MILLIGRAM, QD
     Route: 048
     Dates: start: 20211020
  10. APALUTAMIDE [Concomitant]
     Active Substance: APALUTAMIDE
     Indication: Product used for unknown indication
     Route: 065

REACTIONS (14)
  - Memory impairment [Not Recovered/Not Resolved]
  - Blood pressure increased [Not Recovered/Not Resolved]
  - Amnesia [Unknown]
  - Dry skin [Unknown]
  - Joint swelling [Unknown]
  - Lethargy [Unknown]
  - Throat clearing [Unknown]
  - Sleep disorder [Unknown]
  - Weight decreased [Unknown]
  - Malaise [Unknown]
  - Rash macular [Unknown]
  - Insomnia [Not Recovered/Not Resolved]
  - Asthenia [Unknown]
  - Incorrect dose administered [Not Recovered/Not Resolved]

NARRATIVE: CASE EVENT DATE: 20230601
